FAERS Safety Report 9413898 (Version 1)
Quarter: 2013Q3

REPORT INFORMATION
  Report Type: Spontaneous
  Country: GB (occurrence: GB)
  Receive Date: 20130723
  Receipt Date: 20130723
  Transmission Date: 20140515
  Serious: Yes (Other)
  Sender: FDA-Public Use
  Company Number: GB-AMGEN-GBRSP2013048808

PATIENT
  Age: 44 Year
  Sex: Female

DRUGS (1)
  1. ENBREL [Suspect]
     Indication: PRODUCT USED FOR UNKNOWN INDICATION
     Dosage: 50MG UNIT DOSE
     Route: 065
     Dates: start: 20130701

REACTIONS (4)
  - Headache [Unknown]
  - Dysgeusia [Unknown]
  - Injection site reaction [Unknown]
  - Lower respiratory tract infection [Unknown]
